FAERS Safety Report 8371984-4 (Version None)
Quarter: 2012Q2

REPORT INFORMATION
  Report Type: 
  Country: None (occurrence: None)
  Receive Date: 20120518
  Receipt Date: 20120511
  Transmission Date: 20120825
  Serious: Yes (Other)
  Sender: FDA-Public Use
  Company Number: GR-ROCHE-1049239

PATIENT
  Sex: Female
  Weight: 60 kg

DRUGS (4)
  1. ACTEMRA [Suspect]
     Indication: RHEUMATOID ARTHRITIS
     Dosage: MONTHLY DOSE: 480 MG
     Route: 042
     Dates: start: 20110325, end: 20120307
  2. MEDROL [Concomitant]
     Route: 048
  3. ACTONEL [Concomitant]
     Dosage: TWO CONSECUTIVE DAYS MONTHLY
     Route: 048
  4. NEORAL [Concomitant]
     Indication: RHEUMATOID ARTHRITIS
     Route: 048

REACTIONS (3)
  - RHEUMATOID ARTHRITIS [None]
  - HEPATIC ENZYME INCREASED [None]
  - DRUG EFFECT DECREASED [None]
